FAERS Safety Report 8540836-9 (Version None)
Quarter: 2012Q3

REPORT INFORMATION
  Report Type: 
  Country: None (occurrence: None)
  Receive Date: 20120726
  Receipt Date: 20120713
  Transmission Date: 20120928
  Serious: No
  Sender: FDA-Public Use
  Company Number: US-ASTRAZENECA-2011SE73225

PATIENT
  Age: 62 Year
  Sex: Female
  Weight: 64.9 kg

DRUGS (8)
  1. SYMBICORT [Suspect]
     Dosage: 80/4.5 MCG, 1 PUFFS DAILY
     Route: 055
  2. SYMBICORT [Suspect]
     Dosage: 160/4.5 MCG, 4 PUFFS DAILY
     Route: 055
     Dates: start: 20110101
  3. SYMBICORT [Suspect]
     Dosage: 80/4.5 MCG, 2 PUFFS BID
     Route: 055
     Dates: start: 20120101
  4. VITAMIN [Concomitant]
  5. SYMBICORT [Suspect]
     Indication: ASTHMA
     Dosage: 80/4.5 MCG, 2 PUFF BID
     Route: 055
     Dates: start: 20090101, end: 20110101
  6. SYMBICORT [Suspect]
     Dosage: 80/4.5 MCG, 4 PUFFS UNKNOWN
     Route: 055
  7. NATURAL SUPPLEMENT [Concomitant]
  8. SYMBICORT [Suspect]
     Dosage: 80/4.5 MCG, 1 PUFF BID
     Route: 055
     Dates: start: 20110101, end: 20120501

REACTIONS (4)
  - ASTHMA [None]
  - OFF LABEL USE [None]
  - CIRCUMSTANCE OR INFORMATION CAPABLE OF LEADING TO MEDICATION ERROR [None]
  - CHEST DISCOMFORT [None]
